FAERS Safety Report 9349840 (Version 3)
Quarter: 2013Q3

REPORT INFORMATION
  Report Type: Report from Study
  Country: BR (occurrence: BR)
  Receive Date: 20130614
  Receipt Date: 20130724
  Transmission Date: 20140515
  Serious: Yes (Hospitalization)
  Sender: FDA-Public Use
  Company Number: BR-ABBOTT-12P-020-1005208-00

PATIENT
  Age: 66 Year
  Sex: Male
  Weight: 70 kg

DRUGS (5)
  1. HUMIRA [Suspect]
     Indication: CROHN^S DISEASE
     Dosage: WEEK 0
     Route: 058
     Dates: start: 20121031, end: 20121031
  2. HUMIRA [Suspect]
     Dosage: WEEK 2
     Route: 058
     Dates: start: 201211, end: 201211
  3. HUMIRA [Suspect]
     Route: 058
     Dates: start: 201211
  4. MESALAZINE [Concomitant]
     Indication: ANTIINFLAMMATORY THERAPY
     Dosage: 4 TABLET
     Route: 048
     Dates: start: 200712
  5. MESALAZINE [Concomitant]
     Indication: CROHN^S DISEASE

REACTIONS (10)
  - Inflammation [Recovered/Resolved]
  - VIIth nerve paralysis [Recovered/Resolved]
  - Abdominal pain [Recovering/Resolving]
  - Stomatitis [Not Recovered/Not Resolved]
  - Stomatitis [Not Recovered/Not Resolved]
  - Diarrhoea [Recovering/Resolving]
  - Muscle spasms [Not Recovered/Not Resolved]
  - Diarrhoea [Not Recovered/Not Resolved]
  - Gastrointestinal inflammation [Unknown]
  - Oral disorder [Unknown]
